FAERS Safety Report 12863165 (Version 1)
Quarter: 2016Q4

REPORT INFORMATION
  Report Type: Spontaneous
  Country: US (occurrence: US)
  Receive Date: 20161019
  Receipt Date: 20161019
  Transmission Date: 20170207
  Serious: No
  Sender: FDA-Public Use
  Company Number: US-OTSUKA-2016_023835

PATIENT
  Age: 43 Year
  Sex: Male

DRUGS (1)
  1. REXULTI [Suspect]
     Active Substance: BREXPIPRAZOLE
     Indication: MAJOR DEPRESSION
     Dosage: UNK
     Route: 065

REACTIONS (4)
  - Impulsive behaviour [Recovered/Resolved]
  - Compulsions [Recovered/Resolved]
  - Gambling [Recovered/Resolved]
  - Obsessive thoughts [Recovered/Resolved]
